FAERS Safety Report 5721390-3 (Version None)
Quarter: 2008Q2

REPORT INFORMATION
  Report Type: 
  Country: None (occurrence: None)
  Receive Date: 20080429
  Receipt Date: 20080421
  Transmission Date: 20081010
  Serious: Yes (Other)
  Sender: FDA-Public Use
  Company Number: US-SANOFI-SYNTHELABO-A03200801542

PATIENT
  Sex: Male
  Weight: 115.7 kg

DRUGS (1)
  1. AMBIEN [Suspect]
     Indication: INSOMNIA
     Route: 048
     Dates: start: 20020101

REACTIONS (6)
  - BLOOD CHOLESTEROL INCREASED [None]
  - DRUG DEPENDENCE [None]
  - GASTROOESOPHAGEAL REFLUX DISEASE [None]
  - HYPERTENSION [None]
  - SLEEP APNOEA SYNDROME [None]
  - WEIGHT INCREASED [None]
